FAERS Safety Report 10739843 (Version 1)
Quarter: 2015Q1

REPORT INFORMATION
  Report Type: Spontaneous
  Country: US (occurrence: US)
  Receive Date: 20150127
  Receipt Date: 20150127
  Transmission Date: 20150721
  Serious: Yes (Hospitalization)
  Sender: FDA-Public Use
  Company Number: US-JNJFOC-20150111615

PATIENT
  Age: 47 Year
  Sex: Female
  Weight: 188.2 kg

DRUGS (4)
  1. ASA [Suspect]
     Active Substance: ASPIRIN
     Indication: SUICIDE ATTEMPT
     Route: 048
     Dates: start: 201107
  2. ANTIHYPERTENSIVE [Concomitant]
     Active Substance: UNSPECIFIED INGREDIENT
     Indication: HYPERTENSION
     Route: 065
  3. EXTRA STRENGTH TYLENOL PM [Suspect]
     Active Substance: ACETAMINOPHEN\DIPHENHYDRAMINE HYDROCHLORIDE
     Indication: SUICIDE ATTEMPT
     Route: 048
     Dates: start: 201107
  4. BC [Suspect]
     Active Substance: ASPIRIN\CAFFEINE
     Indication: SUICIDE ATTEMPT
     Route: 048
     Dates: start: 201107

REACTIONS (7)
  - Hypokalaemia [Unknown]
  - Intentional overdose [Recovering/Resolving]
  - Suicide attempt [None]
  - Tachypnoea [Recovering/Resolving]
  - Hypertension [Not Recovered/Not Resolved]
  - Iron deficiency anaemia [Unknown]
  - Oxygen saturation decreased [Unknown]

NARRATIVE: CASE EVENT DATE: 201107
